FAERS Safety Report 24025208 (Version 1)
Quarter: 2024Q2

REPORT INFORMATION
  Report Type: Spontaneous
  Country: US (occurrence: US)
  Receive Date: 20240628
  Receipt Date: 20240628
  Transmission Date: 20240715
  Serious: No
  Sender: FDA-Public Use
  Company Number: US-AUROBINDO-AUR-APL-2023-059146

PATIENT
  Age: 80 Year
  Sex: Female
  Weight: 77.5 kg

DRUGS (1)
  1. AZELASTINE HYDROCHLORIDE [Suspect]
     Active Substance: AZELASTINE HYDROCHLORIDE
     Indication: Sinusitis
     Dosage: UNK, TWO TIMES A DAY
     Route: 065
     Dates: start: 20230906

REACTIONS (3)
  - Device malfunction [Unknown]
  - Device leakage [Unknown]
  - Wrong technique in product usage process [Unknown]
